FAERS Safety Report 12501977 (Version 1)
Quarter: 2016Q2

REPORT INFORMATION
  Report Type: Spontaneous
  Country: US (occurrence: US)
  Receive Date: 20160627
  Receipt Date: 20160627
  Transmission Date: 20160815
  Serious: Yes (Other)
  Sender: FDA-Public Use
  Company Number: US-TEVA-669778USA

PATIENT
  Age: 38 Year
  Sex: Female

DRUGS (1)
  1. ZECUITY [Suspect]
     Active Substance: SUMATRIPTAN SUCCINATE
     Dosage: 6.5 MG OVER 4 HOURS
     Route: 062
     Dates: start: 20151225

REACTIONS (12)
  - Application site burn [Unknown]
  - Application site discharge [Unknown]
  - Application site pain [Unknown]
  - Application site pain [Recovered/Resolved]
  - Application site discolouration [Unknown]
  - Drug effect incomplete [Unknown]
  - Application site pruritus [Unknown]
  - Application site vesicles [Unknown]
  - Product physical issue [Unknown]
  - Application site scar [Unknown]
  - Application site erythema [Recovered/Resolved]
  - Inappropriate schedule of drug administration [Unknown]

NARRATIVE: CASE EVENT DATE: 20151225
